FAERS Safety Report 11169499 (Version 1)
Quarter: 2015Q2

REPORT INFORMATION
  Report Type: Spontaneous
  Country: DE (occurrence: DE)
  Receive Date: 20150605
  Receipt Date: 20150605
  Transmission Date: 20150821
  Serious: Yes (Other)
  Sender: FDA-Public Use
  Company Number: DE-TEVA-566675GER

PATIENT
  Age: 1 Day
  Sex: Male

DRUGS (3)
  1. PREDNISOLON [Suspect]
     Active Substance: PREDNISOLONE
     Indication: CROHN^S DISEASE
     Dosage: 10 MILLIGRAM DAILY;
     Route: 064
  2. PANTOPRAZOLE SODIUM. [Concomitant]
     Active Substance: PANTOPRAZOLE SODIUM
     Indication: CROHN^S DISEASE
     Dosage: 40 MILLIGRAM DAILY;
     Route: 064
     Dates: start: 2006
  3. HUMIRA [Concomitant]
     Active Substance: ADALIMUMAB
     Indication: CROHN^S DISEASE
     Route: 064
     Dates: start: 20140312, end: 20140415

REACTIONS (1)
  - Small for dates baby [Recovering/Resolving]

NARRATIVE: CASE EVENT DATE: 20141218
